FAERS Safety Report 15918714 (Version 1)
Quarter: 2019Q1

REPORT INFORMATION
  Report Type: Spontaneous
  Country: US (occurrence: US)
  Receive Date: 20190205
  Receipt Date: 20190205
  Transmission Date: 20190417
  Serious: No
  Sender: FDA-Public Use
  Company Number: US-SA-2019SA030350

PATIENT
  Sex: Male

DRUGS (5)
  1. MITIGARE [Concomitant]
     Active Substance: COLCHICINE
     Dosage: 0.6 MG
  2. PRALUENT [Suspect]
     Active Substance: ALIROCUMAB
     Indication: CARDIOVASCULAR DISORDER
     Dosage: 75 MG, QOW
     Route: 058
  3. REPATHA [Concomitant]
     Active Substance: EVOLOCUMAB
  4. GABAPENTIN. [Concomitant]
     Active Substance: GABAPENTIN
     Dosage: 300 MG
  5. ULORIC [Concomitant]
     Active Substance: FEBUXOSTAT
     Dosage: 80 MG

REACTIONS (5)
  - Arthritis [Unknown]
  - Gout [Unknown]
  - Pain [Unknown]
  - Myalgia [Unknown]
  - Gait disturbance [Unknown]
